FAERS Safety Report 4385879-4 (Version None)
Quarter: 2004Q2

REPORT INFORMATION
  Report Type: 
  Country: None (occurrence: None)
  Receive Date: 20040628
  Receipt Date: 20040217
  Transmission Date: 20050107
  Serious: Yes (Hospitalization)
  Sender: FDA-Public Use
  Company Number: FR-GLAXOSMITHKLINE-B0323572A

PATIENT
  Age: 86 Year
  Sex: Female

DRUGS (10)
  1. FORTUM [Suspect]
     Dosage: 2G PER DAY
     Route: 042
     Dates: start: 20040107, end: 20040117
  2. POLARAMINE [Suspect]
     Dosage: 5MG TWICE PER DAY
     Route: 042
     Dates: start: 20031210, end: 20040117
  3. EUPANTOL [Suspect]
     Dosage: 40MG PER DAY
     Route: 042
     Dates: start: 20031201, end: 20040117
  4. CIPROFLOXACIN [Concomitant]
     Dosage: 400MG TWICE PER DAY
     Route: 048
     Dates: start: 20040107
  5. AMBISOME [Concomitant]
     Route: 065
     Dates: end: 20040109
  6. VANCOMYCIN [Concomitant]
     Route: 065
     Dates: end: 20040109
  7. CLINOMEL [Concomitant]
     Dosage: 1L PER DAY
     Route: 065
     Dates: start: 20030901
  8. ACETAMINOPHEN [Concomitant]
     Dosage: 1G SEE DOSAGE TEXT
     Route: 042
     Dates: start: 20030901
  9. VITAMIN K1 [Concomitant]
     Dosage: 10MG UNKNOWN
     Route: 042
     Dates: start: 20031101
  10. FRAGMIN [Concomitant]
     Dosage: 2500IU UNKNOWN
     Route: 058
     Dates: start: 20031215

REACTIONS (2)
  - NEUTROPENIA [None]
  - PYREXIA [None]
